FAERS Safety Report 5322223-X (Version None)
Quarter: 2007Q2

REPORT INFORMATION
  Report Type: 
  Country: None (occurrence: None)
  Receive Date: 20070511
  Receipt Date: 20070402
  Transmission Date: 20071010
  Serious: Yes (Hospitalization)
  Sender: FDA-Public Use
  Company Number: CZ-ROCHE-495869

PATIENT
  Age: 68 Year
  Sex: Female

DRUGS (9)
  1. BONIVA [Suspect]
     Indication: OSTEOPOROSIS
     Route: 048
     Dates: start: 20070401, end: 20070430
  2. RAMIL [Concomitant]
  3. EUPHYLLIN [Concomitant]
  4. DEGAN [Concomitant]
  5. TRENTAL [Concomitant]
  6. ANOPYRIN [Concomitant]
  7. TORVACARD [Concomitant]
  8. ASCORUTIN [Concomitant]
  9. OSTEOCARE [Concomitant]

REACTIONS (3)
  - DYSPNOEA [None]
  - FATIGUE [None]
  - PAIN IN EXTREMITY [None]
